FAERS Safety Report 21998791 (Version 6)
Quarter: 2023Q4

REPORT INFORMATION
  Report Type: Report from Study
  Country: JP (occurrence: JP)
  Receive Date: 20230216
  Receipt Date: 20231103
  Transmission Date: 20240109
  Serious: Yes (Other)
  Sender: FDA-Public Use
  Company Number: JP-ARGENX-2023-ARGX-JP000406

PATIENT
  Sex: Female
  Weight: 52 kg

DRUGS (31)
  1. VYVGART [Suspect]
     Active Substance: EFGARTIGIMOD ALFA-FCAB
     Indication: Myasthenia gravis
     Dosage: 400 MG
     Route: 041
     Dates: start: 20220629, end: 20220720
  2. VYVGART [Suspect]
     Active Substance: EFGARTIGIMOD ALFA-FCAB
     Dosage: UNK
     Route: 041
  3. PREDNISOLONE [Concomitant]
     Active Substance: PREDNISOLONE
     Indication: Myasthenia gravis
     Dosage: 9 MG
     Route: 048
     Dates: start: 20220518
  4. PREDNISOLONE [Concomitant]
     Active Substance: PREDNISOLONE
     Dosage: 5 MG
     Route: 048
     Dates: start: 20220622
  5. PREDNISOLONE [Concomitant]
     Active Substance: PREDNISOLONE
     Dosage: 10 MG
     Route: 065
  6. PREDNISOLONE [Concomitant]
     Active Substance: PREDNISOLONE
     Dosage: 15 MG
     Route: 065
  7. PREDNISOLONE [Concomitant]
     Active Substance: PREDNISOLONE
     Dosage: UNK
     Route: 065
  8. PREDNISOLONE [Concomitant]
     Active Substance: PREDNISOLONE
     Dosage: 4 MG
     Route: 048
     Dates: start: 20211020
  9. TACROLIMUS [Concomitant]
     Active Substance: TACROLIMUS
     Indication: Myasthenia gravis
     Dosage: 3 MG
     Route: 048
     Dates: start: 20220518
  10. MESTINON [Concomitant]
     Active Substance: PYRIDOSTIGMINE BROMIDE
     Indication: Myasthenia gravis
     Dosage: 60 MG
     Route: 048
     Dates: start: 20220518
  11. HERCEPTIN [Suspect]
     Active Substance: TRASTUZUMAB
     Indication: Breast cancer
     Dosage: 415 MG
     Route: 041
     Dates: start: 20230119, end: 20230119
  12. HERCEPTIN [Suspect]
     Active Substance: TRASTUZUMAB
     Dosage: 320 MG
     Route: 041
     Dates: start: 20230214, end: 20230214
  13. HERCEPTIN [Suspect]
     Active Substance: TRASTUZUMAB
     Dosage: 320 MG
     Route: 041
     Dates: start: 20230307, end: 20230307
  14. HERCEPTIN [Suspect]
     Active Substance: TRASTUZUMAB
     Dosage: 320 MG
     Route: 041
     Dates: start: 20230328, end: 20230328
  15. PERJETA [Suspect]
     Active Substance: PERTUZUMAB
     Indication: Breast cancer
     Dosage: 840 MG
     Route: 041
     Dates: start: 20230119, end: 20230119
  16. PERJETA [Suspect]
     Active Substance: PERTUZUMAB
     Dosage: 420 MG
     Route: 041
     Dates: start: 20230214, end: 20230214
  17. PERJETA [Suspect]
     Active Substance: PERTUZUMAB
     Dosage: 420 MG
     Route: 041
     Dates: start: 20230307, end: 20230307
  18. PERJETA [Suspect]
     Active Substance: PERTUZUMAB
     Dosage: 420 MG
     Route: 041
     Dates: start: 20230328, end: 20230328
  19. DOCETAXEL [Suspect]
     Active Substance: DOCETAXEL\DOCETAXEL ANHYDROUS
     Indication: Breast cancer
     Dosage: 110 MG
     Route: 041
     Dates: start: 20230119, end: 20230119
  20. DOCETAXEL [Suspect]
     Active Substance: DOCETAXEL\DOCETAXEL ANHYDROUS
     Dosage: 90 MG
     Route: 041
     Dates: start: 20230214, end: 20230214
  21. DOCETAXEL [Suspect]
     Active Substance: DOCETAXEL\DOCETAXEL ANHYDROUS
     Dosage: 90 MG
     Route: 041
     Dates: start: 20230307, end: 20230307
  22. DOCETAXEL [Suspect]
     Active Substance: DOCETAXEL\DOCETAXEL ANHYDROUS
     Dosage: 90 MG
     Route: 041
     Dates: start: 20230328, end: 20230328
  23. GRANISETRON [Suspect]
     Active Substance: GRANISETRON
     Indication: Breast cancer
     Dosage: 1 MG
     Route: 041
     Dates: start: 20230119, end: 20230119
  24. GRANISETRON [Suspect]
     Active Substance: GRANISETRON
     Dosage: 1 MG
     Route: 041
     Dates: start: 20230214, end: 20230214
  25. GRANISETRON [Suspect]
     Active Substance: GRANISETRON
     Dosage: 1 MG
     Route: 041
     Dates: start: 20230307, end: 20230307
  26. GRANISETRON [Suspect]
     Active Substance: GRANISETRON
     Dosage: 1 MG
     Route: 041
     Dates: start: 20230328, end: 20230328
  27. DEXAMETHASONE SODIUM PHOSPHATE [Suspect]
     Active Substance: DEXAMETHASONE SODIUM PHOSPHATE
     Indication: Breast cancer
     Dosage: 6.6 MG
     Route: 041
     Dates: start: 20230119, end: 20230119
  28. DEXAMETHASONE SODIUM PHOSPHATE [Suspect]
     Active Substance: DEXAMETHASONE SODIUM PHOSPHATE
     Dosage: 6.6 MG
     Route: 041
     Dates: start: 20230214, end: 20230214
  29. DEXAMETHASONE SODIUM PHOSPHATE [Suspect]
     Active Substance: DEXAMETHASONE SODIUM PHOSPHATE
     Dosage: 6.6 MG
     Route: 041
     Dates: start: 20230307, end: 20230307
  30. DEXAMETHASONE SODIUM PHOSPHATE [Suspect]
     Active Substance: DEXAMETHASONE SODIUM PHOSPHATE
     Dosage: 6.6 MG
     Route: 041
     Dates: start: 20230328, end: 20230328
  31. LENOGRASTIM [Suspect]
     Active Substance: LENOGRASTIM
     Indication: Breast cancer
     Dosage: 100 UG
     Route: 058
     Dates: start: 20230130, end: 20230201

REACTIONS (1)
  - Neutropenia [Recovered/Resolved]

NARRATIVE: CASE EVENT DATE: 20230130
